FAERS Safety Report 4274392-0 (Version None)
Quarter: 2004Q1

REPORT INFORMATION
  Report Type: 
  Country: None (occurrence: None)
  Receive Date: 20040120
  Receipt Date: 20031126
  Transmission Date: 20041129
  Serious: Yes (Hospitalization)
  Sender: FDA-Public Use
  Company Number: WAES 0312USA00083

PATIENT
  Age: 92 Year
  Sex: Male

DRUGS (8)
  1. [THERAPY UNSPECIFIED] [Concomitant]
     Route: 048
     Dates: end: 20031124
  2. TRYPTANOL [Concomitant]
     Route: 048
     Dates: end: 20031124
  3. BIODIASTASE [Concomitant]
     Route: 048
     Dates: end: 20031124
  4. CYANOCOBALAMIN AND PYRIDOXINE [Concomitant]
     Route: 048
     Dates: end: 20031124
  5. DIAZEPAM [Suspect]
     Indication: INSOMNIA
     Route: 048
     Dates: start: 19950201, end: 20031124
  6. PEPCID RPD [Suspect]
     Indication: REFLUX OESOPHAGITIS
     Route: 048
     Dates: start: 20030829, end: 20031124
  7. PROPIVERINE HYDROCHLORIDE [Suspect]
     Indication: POLLAKIURIA
     Route: 048
     Dates: start: 20031122, end: 20031124
  8. JUVELA NICOTINATE [Concomitant]
     Route: 048
     Dates: end: 20031124

REACTIONS (5)
  - HEPATIC FUNCTION ABNORMAL [None]
  - LYMPHOCYTE COUNT DECREASED [None]
  - RENAL IMPAIRMENT [None]
  - RHABDOMYOLYSIS [None]
  - WHITE BLOOD CELL COUNT INCREASED [None]
